FAERS Safety Report 20593867 (Version 1)
Quarter: 2022Q1

REPORT INFORMATION
  Report Type: Spontaneous
  Country: FR (occurrence: FR)
  Receive Date: 20220315
  Receipt Date: 20220315
  Transmission Date: 20220423
  Serious: Yes (Hospitalization)
  Sender: FDA-Public Use
  Company Number: None

PATIENT
  Age: 59 Year
  Sex: Female

DRUGS (1)
  1. RISPERDAL [Suspect]
     Active Substance: RISPERIDONE
     Indication: Product used for unknown indication
     Route: 048
     Dates: start: 20211206, end: 20211206

REACTIONS (5)
  - Fatigue [Recovered/Resolved]
  - Sedation [Recovered/Resolved]
  - Tachycardia [Recovered/Resolved]
  - Product preparation error [Recovered/Resolved]
  - Medication error [Unknown]

NARRATIVE: CASE EVENT DATE: 20211206
